FAERS Safety Report 8998512 (Version 1)
Quarter: 2013Q1

REPORT INFORMATION
  Report Type: Spontaneous
  Country: US (occurrence: US)
  Receive Date: 20130103
  Receipt Date: 20130103
  Transmission Date: 20140127
  Serious: No
  Sender: FDA-Public Use
  Company Number: US-PFIZER INC-2012331777

PATIENT
  Sex: Female

DRUGS (2)
  1. VENLAFAXINE HYDROCHLORIDE [Suspect]
     Indication: NEURALGIA
     Dosage: 75 MG, 1X/DAY
     Route: 048
     Dates: start: 201206, end: 201212
  2. VENLAFAXINE HYDROCHLORIDE [Suspect]
     Dosage: 37.5 MG, 1X/DAY
     Dates: start: 201212

REACTIONS (2)
  - Off label use [Unknown]
  - Drug ineffective for unapproved indication [Unknown]
